FAERS Safety Report 9530371 (Version 1)
Quarter: 2013Q3

REPORT INFORMATION
  Report Type: Spontaneous
  Country: US (occurrence: US)
  Receive Date: 20130918
  Receipt Date: 20130918
  Transmission Date: 20140515
  Serious: Yes (Other)
  Sender: FDA-Public Use
  Company Number: US-AMGEN-USASP2013065188

PATIENT
  Age: 72 Year
  Sex: Female
  Weight: 87.98 kg

DRUGS (13)
  1. ENBREL [Suspect]
     Indication: PRODUCT USED FOR UNKNOWN INDICATION
     Dosage: 50 MG, 2 TIMES/WK FOR 10 MORE WEEKS
     Route: 058
  2. XALATAN [Concomitant]
     Dosage: SOL 0.005 %
  3. COMBIGAN [Concomitant]
     Dosage: SOL 0.2 / 0.5 %
  4. LASIX                              /00032601/ [Concomitant]
     Dosage: 20 MG, UNK
  5. NEVANAC [Concomitant]
     Dosage: SUS 0.1 %, UNK
  6. AZOPT [Concomitant]
     Dosage: 1 %, UNK
  7. SIMVASTATIN [Concomitant]
     Dosage: 5 MG, UNK
  8. AMITRIPTYLIN [Concomitant]
     Dosage: 10 MG, UNK
  9. DILTIAZEM [Concomitant]
     Dosage: 90 MG, UNK
  10. VITAMIN D                          /00107901/ [Concomitant]
     Dosage: 1000 UNIT, UNK
  11. MULTIVITAMINS, PLAIN [Concomitant]
     Dosage: UNK
  12. CALCIUM +D                         /00944201/ [Concomitant]
     Dosage: UNK
  13. IRON [Concomitant]
     Dosage: 25 MG, UNK

REACTIONS (4)
  - Uterine cancer [Unknown]
  - Corneal infection [Unknown]
  - Cataract [Unknown]
  - Pterygium [Unknown]
